FAERS Safety Report 19071554 (Version 1)
Quarter: 2021Q1

REPORT INFORMATION
  Report Type: Spontaneous
  Country: CA (occurrence: CA)
  Receive Date: 20210330
  Receipt Date: 20210330
  Transmission Date: 20210420
  Serious: Yes (Hospitalization, Other)
  Sender: FDA-Public Use
  Company Number: CA-JNJFOC-20210348875

PATIENT
  Age: 76 Year
  Sex: Female

DRUGS (2)
  1. PREDNISONE. [Concomitant]
     Active Substance: PREDNISONE
  2. INFLIXIMAB, RECOMBINANT [Suspect]
     Active Substance: INFLIXIMAB
     Indication: CROHN^S DISEASE
     Route: 042

REACTIONS (10)
  - Peripheral swelling [Unknown]
  - Skin atrophy [Unknown]
  - Contusion [Unknown]
  - Purulent discharge [Unknown]
  - Fistula [Unknown]
  - Infection [Unknown]
  - Procedural pain [Unknown]
  - Skin laceration [Unknown]
  - Joint swelling [Unknown]
  - Skin infection [Unknown]
